FAERS Safety Report 21806720 (Version 1)
Quarter: 2023Q1

REPORT INFORMATION
  Report Type: Spontaneous
  Country: PL (occurrence: PL)
  Receive Date: 20230102
  Receipt Date: 20230102
  Transmission Date: 20230418
  Serious: Yes (Hospitalization, Congenital Anomaly, Other)
  Sender: FDA-Public Use
  Company Number: PL-GLAXOSMITHKLINE-PL2022GSK194116

PATIENT

DRUGS (5)
  1. ACYCLOVIR [Suspect]
     Active Substance: ACYCLOVIR
     Indication: Oral herpes
     Dosage: UNK
     Route: 064
  2. ACYCLOVIR [Suspect]
     Active Substance: ACYCLOVIR
     Indication: Herpes zoster
  3. DIGOXIN [Suspect]
     Active Substance: DIGOXIN
     Indication: Product used for unknown indication
     Dosage: UNK
     Route: 064
  4. CEFUROXIME [Suspect]
     Active Substance: CEFUROXIME
     Indication: Product used for unknown indication
     Dosage: UNK
     Route: 064
  5. DEXAMETHASONE [Suspect]
     Active Substance: DEXAMETHASONE
     Indication: Product used for unknown indication
     Dosage: UNK
     Route: 064

REACTIONS (13)
  - Cardiac failure [Unknown]
  - Foetal cardiac disorder [Unknown]
  - Cardiac hypertrophy [Unknown]
  - Pericardial effusion [Unknown]
  - Heart valve incompetence [Unknown]
  - Ascites [Unknown]
  - Hydrops foetalis [Unknown]
  - Foetal monitoring abnormal [Unknown]
  - Premature baby [Unknown]
  - Patent ductus arteriosus [Unknown]
  - Cardiomyopathy neonatal [Unknown]
  - Circulatory failure neonatal [Unknown]
  - Foetal exposure during pregnancy [Unknown]
